FAERS Safety Report 22662567 (Version 6)
Quarter: 2024Q3

REPORT INFORMATION
  Report Type: Report from Study
  Country: DE (occurrence: DE)
  Receive Date: 20230701
  Receipt Date: 20240709
  Transmission Date: 20241017
  Serious: Yes (Death, Life-Threatening, Hospitalization, Other)
  Sender: BAXTER
  Company Number: DE-BAXTER-2023BAX025246

PATIENT
  Age: 72 Year
  Sex: Male
  Weight: 65 kg

DRUGS (30)
  1. DOXORUBICIN [Suspect]
     Active Substance: DOXORUBICIN
     Indication: Salvage therapy
     Dosage: UNK, AS A PART OF FIRST CYCLE OF TREATEMNT
     Route: 065
     Dates: start: 20221117
  2. DOXORUBICIN [Suspect]
     Active Substance: DOXORUBICIN
     Indication: Plasma cell myeloma
     Dosage: UNK
     Route: 065
     Dates: start: 20221229, end: 20221231
  3. CYCLOPHOSPHAMIDE [Suspect]
     Active Substance: CYCLOPHOSPHAMIDE
     Indication: Salvage therapy
     Dosage: UNK
     Route: 065
     Dates: start: 20221229, end: 20221231
  4. CYCLOPHOSPHAMIDE [Suspect]
     Active Substance: CYCLOPHOSPHAMIDE
     Indication: Plasma cell myeloma
  5. BORTEZOMIB [Suspect]
     Active Substance: BORTEZOMIB
     Indication: Drug therapy
     Dosage: UNK, AS A PART OF FIRST CYCLE OF TREATEMNT
     Route: 058
     Dates: start: 20221117
  6. BORTEZOMIB [Suspect]
     Active Substance: BORTEZOMIB
     Indication: Plasma cell myeloma
     Dosage: 3 MG
     Route: 058
     Dates: start: 20230224, end: 20230224
  7. BORTEZOMIB [Suspect]
     Active Substance: BORTEZOMIB
     Dosage: 3 MG
     Route: 058
     Dates: start: 20230228, end: 20230228
  8. BORTEZOMIB [Suspect]
     Active Substance: BORTEZOMIB
     Dosage: UNK
     Route: 058
     Dates: start: 20221228
  9. BORTEZOMIB [Suspect]
     Active Substance: BORTEZOMIB
     Dosage: UNK
     Route: 058
     Dates: start: 20230204
  10. MELPHALAN [Suspect]
     Active Substance: MELPHALAN
     Indication: Overdose
     Dosage: 95 MG
     Route: 042
     Dates: start: 20230310, end: 20230311
  11. DARZALEX [Suspect]
     Active Substance: DARATUMUMAB
     Indication: Plasma cell myeloma
     Dosage: UNK, AS A PART OF FIRST CYCLE OF TREATMENT
     Route: 042
     Dates: start: 20221117
  12. DARZALEX [Suspect]
     Active Substance: DARATUMUMAB
     Dosage: UNK
     Route: 042
     Dates: start: 20221212
  13. DARZALEX [Suspect]
     Active Substance: DARATUMUMAB
     Dosage: UNK
     Route: 042
     Dates: start: 20230204
  14. ETOPOSIDE [Suspect]
     Active Substance: ETOPOSIDE
     Indication: Plasma cell myeloma
     Dosage: UNK
     Route: 065
  15. ETOPOSIDE [Suspect]
     Active Substance: ETOPOSIDE
     Dosage: UNK
     Route: 065
  16. THALIDOMIDE [Suspect]
     Active Substance: THALIDOMIDE
     Dosage: UNK
     Route: 065
  17. DARATUMUMAB [Suspect]
     Active Substance: DARATUMUMAB
     Indication: Drug therapy
     Dosage: UNK AS A PART OF FIRST CYCLE OF TREATMENT
     Route: 042
     Dates: start: 20221117
  18. DARATUMUMAB [Suspect]
     Active Substance: DARATUMUMAB
     Dosage: 1120 MG
     Route: 042
     Dates: start: 20230224, end: 20230224
  19. DARATUMUMAB [Suspect]
     Active Substance: DARATUMUMAB
     Dosage: 1120 MG
     Route: 042
     Dates: start: 20230228, end: 20230228
  20. DARATUMUMAB [Suspect]
     Active Substance: DARATUMUMAB
     Dosage: UNK
     Route: 065
  21. CARFILZOMIB [Suspect]
     Active Substance: CARFILZOMIB
     Indication: Plasma cell myeloma
     Dosage: UNK
     Route: 065
  22. POMALIDOMIDE [Suspect]
     Active Substance: POMALIDOMIDE
     Dosage: UNK, AS A PART OF FIRST CYCLE OF TREATEMNT
     Route: 065
     Dates: start: 20221117
  23. DEXAMETHASONE [Suspect]
     Active Substance: DEXAMETHASONE
     Indication: Sepsis
     Dosage: UNK, AS A PART OF FIRST CYCLE OF TREATEMNT
     Route: 065
     Dates: start: 20221117
  24. DEXAMETHASONE [Suspect]
     Active Substance: DEXAMETHASONE
     Indication: Product used for unknown indication
     Dosage: UNK
     Route: 065
     Dates: start: 20230320, end: 20230320
  25. TECLISTAMAB [Suspect]
     Active Substance: TECLISTAMAB
     Dosage: AFTER CYCLOPHOSPHAMIDE AND DOXORUBICIN ADMINISTRATION
     Route: 065
  26. PIPERACILLIN [Concomitant]
     Active Substance: PIPERACILLIN
     Indication: Sepsis
     Dosage: UNK
     Route: 042
     Dates: start: 20230320, end: 20230321
  27. TAZOBACTAM [Concomitant]
     Active Substance: TAZOBACTAM
     Indication: Sepsis
     Dosage: UNK
     Route: 042
     Dates: start: 20230320, end: 20230321
  28. ACYCLOVIR [Concomitant]
     Active Substance: ACYCLOVIR
     Indication: Sepsis
     Dosage: UNK
     Route: 042
     Dates: start: 20230320, end: 20230322
  29. MEROPENEM [Concomitant]
     Active Substance: MEROPENEM
     Indication: Sepsis
     Dosage: UNK
     Route: 042
     Dates: start: 20230321, end: 20230322
  30. MEROPENEM [Concomitant]
     Active Substance: MEROPENEM
     Indication: Bacterial infection

REACTIONS (16)
  - Multiple organ dysfunction syndrome [Fatal]
  - Sepsis [Fatal]
  - Bone marrow failure [Fatal]
  - Device related sepsis [Recovered/Resolved]
  - Depressed level of consciousness [Unknown]
  - Pulmonary oedema [Recovered/Resolved]
  - General physical health deterioration [Unknown]
  - Renal failure [Not Recovered/Not Resolved]
  - Bone marrow failure [Recovered/Resolved]
  - Pneumonia [Unknown]
  - Bone marrow failure [Recovered/Resolved]
  - Disturbance in attention [Recovered/Resolved]
  - Tachypnoea [Recovered/Resolved]
  - Hypertension [Not Recovered/Not Resolved]
  - Tachycardia [Unknown]
  - Pyrexia [Recovered/Resolved]

NARRATIVE: CASE EVENT DATE: 20221218
